FAERS Safety Report 23807628 (Version 5)
Quarter: 2024Q3

REPORT INFORMATION
  Report Type: Report from Study
  Country: CA (occurrence: CA)
  Receive Date: 20240502
  Receipt Date: 20240910
  Transmission Date: 20241017
  Serious: Yes (Other)
  Sender: TAKEDA
  Company Number: CA-TAKEDA-2024TUS022631

PATIENT
  Age: 54 Year
  Sex: Female

DRUGS (16)
  1. VEDOLIZUMAB [Suspect]
     Active Substance: VEDOLIZUMAB
     Indication: Colitis ulcerative
     Dosage: 300 MILLIGRAM
     Route: 042
     Dates: start: 20231121
  2. VEDOLIZUMAB [Suspect]
     Active Substance: VEDOLIZUMAB
     Dosage: 300 MILLIGRAM, Q4WEEKS
     Route: 042
     Dates: start: 20240522
  3. VEDOLIZUMAB [Suspect]
     Active Substance: VEDOLIZUMAB
     Dosage: 300 MILLIGRAM, Q4WEEKS
     Route: 042
  4. VEDOLIZUMAB [Suspect]
     Active Substance: VEDOLIZUMAB
     Dosage: 300 MILLIGRAM, Q4WEEKS
     Route: 042
  5. Salofalk [Concomitant]
     Indication: Condition aggravated
     Dosage: 500 MILLIGRAM
     Dates: start: 20031101
  6. Salofalk [Concomitant]
     Dosage: UNK
     Dates: start: 2007
  7. Salofalk [Concomitant]
     Dosage: UNK
     Dates: start: 202310, end: 202401
  8. Salofalk [Concomitant]
     Dosage: 4 GRAM
  9. Salofalk [Concomitant]
     Dosage: 1 GRAM
  10. BUPROPION [Concomitant]
     Active Substance: BUPROPION
     Dosage: 9 MILLIGRAM
     Route: 048
     Dates: start: 20230901
  11. BUDESONIDE [Concomitant]
     Active Substance: BUDESONIDE
     Dosage: UNK
     Dates: start: 20231027, end: 20231227
  12. MESALAMINE [Concomitant]
     Active Substance: MESALAMINE
     Indication: Colitis ulcerative
     Dosage: 1.2 MILLIGRAM
     Route: 048
     Dates: start: 20231101, end: 20240301
  13. MESALAMINE [Concomitant]
     Active Substance: MESALAMINE
     Dosage: 4.8 GRAM, QD
     Route: 048
  14. AZATHIOPRINE [Concomitant]
     Active Substance: AZATHIOPRINE
     Dosage: 75 MILLIGRAM, QD
     Dates: end: 202310
  15. MODERNA COVID-19 VACCINE [Concomitant]
     Active Substance: ELASOMERAN
     Dosage: UNK
  16. POLYETHYLENE GLYCOL 3350 [Concomitant]
     Active Substance: POLYETHYLENE GLYCOL 3350
     Dosage: UNK

REACTIONS (11)
  - Haematochezia [Unknown]
  - Colitis [Unknown]
  - Colorectal adenoma [Unknown]
  - Off label use [Unknown]
  - Large intestine polyp [Unknown]
  - Aphthous ulcer [Unknown]
  - Diverticulum intestinal [Unknown]
  - Constipation [Unknown]
  - Diarrhoea [Unknown]
  - Abdominal pain [Unknown]
  - Fatigue [Unknown]

NARRATIVE: CASE EVENT DATE: 20240522
